FAERS Safety Report 6659497-9 (Version None)
Quarter: 2010Q1

REPORT INFORMATION
  Report Type: 
  Country: None (occurrence: None)
  Receive Date: 20100330
  Receipt Date: 20100318
  Transmission Date: 20100710
  Serious: Yes (Hospitalization)
  Sender: FDA-Public Use
  Company Number: JP-ELI_LILLY_AND_COMPANY-JP201003005837

PATIENT
  Age: 15 Year
  Sex: Female

DRUGS (4)
  1. ZYPREXA [Suspect]
     Indication: SCHIZOPHRENIA
     Dosage: 15 MG, DAILY (1/D)
     Route: 048
     Dates: start: 20091225, end: 20100303
  2. ZYPREXA [Suspect]
     Dosage: 150 MG, UNK
     Route: 048
     Dates: start: 20100304, end: 20100304
  3. ZYPREXA [Suspect]
     Dosage: 30 D/F, UNK
     Route: 048
     Dates: start: 20100318
  4. GLYSENNID [Concomitant]
     Indication: CONSTIPATION
     Dosage: 24 MG, DAILY (1/D)
     Route: 048
     Dates: start: 20091225, end: 20100304

REACTIONS (7)
  - ALTERED STATE OF CONSCIOUSNESS [None]
  - BLOOD ALKALINE PHOSPHATASE DECREASED [None]
  - CONVULSION [None]
  - INTENTIONAL OVERDOSE [None]
  - OVERDOSE [None]
  - STATUS EPILEPTICUS [None]
  - SUICIDE ATTEMPT [None]
